APPROVED DRUG PRODUCT: FOSINOPRIL SODIUM
Active Ingredient: FOSINOPRIL SODIUM
Strength: 10MG
Dosage Form/Route: TABLET;ORAL
Application: A076188 | Product #001
Applicant: UPSHER SMITH LABORATORIES LLC
Approved: Oct 8, 2004 | RLD: No | RS: No | Type: DISCN